FAERS Safety Report 9414316 (Version 1)
Quarter: 2013Q3

REPORT INFORMATION
  Report Type: Spontaneous
  Country: US (occurrence: US)
  Receive Date: 20130723
  Receipt Date: 20130723
  Transmission Date: 20140515
  Serious: No
  Sender: FDA-Public Use
  Company Number: US-009507513-1307USA004912

PATIENT
  Age: 36 Year
  Sex: Male

DRUGS (1)
  1. VICTRELIS [Suspect]
     Dosage: 200 MG, TID
     Route: 048
     Dates: start: 201305

REACTIONS (3)
  - Chest pain [Unknown]
  - Nausea [Unknown]
  - Vomiting [Unknown]
